FAERS Safety Report 14473390 (Version 1)
Quarter: 2018Q1

REPORT INFORMATION
  Report Type: Spontaneous
  Country: PL (occurrence: PL)
  Receive Date: 20180201
  Receipt Date: 20180201
  Transmission Date: 20180509
  Serious: Yes (Hospitalization)
  Sender: FDA-Public Use
  Company Number: PL-STRIDES ARCOLAB LIMITED-2018SP000638

PATIENT

DRUGS (2)
  1. MYCOPHENOLATE MOFETIL. [Suspect]
     Active Substance: MYCOPHENOLATE MOFETIL
     Indication: RENAL TRANSPLANT
     Dosage: UNK
     Route: 065
  2. TACROLIMUS. [Suspect]
     Active Substance: TACROLIMUS
     Indication: RENAL TRANSPLANT
     Dosage: UNK
     Route: 065

REACTIONS (9)
  - Tachycardia [Unknown]
  - Haemodynamic instability [Unknown]
  - Haemolytic anaemia [Unknown]
  - Pyrexia [Unknown]
  - Dyspnoea exertional [Unknown]
  - Cardiac valve vegetation [Unknown]
  - Device leakage [Unknown]
  - Endocarditis [Unknown]
  - Inflammatory marker increased [Unknown]
